FAERS Safety Report 7628689-4 (Version None)
Quarter: 2011Q3

REPORT INFORMATION
  Report Type: 
  Country: None (occurrence: None)
  Receive Date: 20110721
  Receipt Date: 20110721
  Transmission Date: 20111222
  Serious: Yes (Other)
  Sender: FDA-Public Use
  Company Number: None

PATIENT
  Age: 45 Year
  Sex: Female
  Weight: 77.1115 kg

DRUGS (1)
  1. KENDALL SKIN BARRIER WIPES KENDALL [Suspect]
     Dosage: TOPICAL
     Route: 061

REACTIONS (1)
  - RASH [None]
